FAERS Safety Report 26122555 (Version 1)
Quarter: 2025Q4

REPORT INFORMATION
  Report Type: Spontaneous
  Country: US (occurrence: None)
  Receive Date: 20251204
  Receipt Date: 20251204
  Transmission Date: 20260118
  Serious: No
  Sender: FDA-CTU
  Company Number: None

PATIENT
  Sex: Female

DRUGS (5)
  1. AMBRISENTAN [Suspect]
     Active Substance: AMBRISENTAN
     Indication: Pulmonary arterial hypertension
     Dosage: FREQUENCY : DAILY;?
     Route: 048
  2. SILDENAFIL [Concomitant]
     Active Substance: SILDENAFIL
  3. VUMERITY [Concomitant]
     Active Substance: DIROXIMEL FUMARATE
  4. DIGOXIN [Concomitant]
     Active Substance: DIGOXIN
  5. ELIQUIS [Concomitant]
     Active Substance: APIXABAN

REACTIONS (2)
  - Product use issue [None]
  - Insurance issue [None]
